FAERS Safety Report 5073439-1 (Version None)
Quarter: 2006Q3

REPORT INFORMATION
  Report Type: 
  Country: None (occurrence: None)
  Receive Date: 20060808
  Receipt Date: 20060721
  Transmission Date: 20061208
  Serious: Yes (Other)
  Sender: FDA-Public Use
  Company Number: JP-BAYER-200613096GDS

PATIENT
  Age: 67 Year
  Sex: Female

DRUGS (7)
  1. ASPIRIN [Suspect]
     Indication: ANTICOAGULANT THERAPY
     Route: 048
     Dates: start: 20060326
  2. ASPIRIN [Interacting]
     Route: 048
     Dates: start: 20041101, end: 20060321
  3. WARFARIN SODIUM [Interacting]
     Indication: ANTICOAGULANT THERAPY
     Route: 048
     Dates: start: 20041101, end: 20060321
  4. WARFARIN SODIUM [Interacting]
     Route: 048
     Dates: start: 20060326
  5. DIOVAN [Concomitant]
     Indication: HYPERTENSION
     Route: 048
     Dates: start: 20041101
  6. ADALAT [Concomitant]
     Indication: HYPERTENSION
     Route: 048
     Dates: start: 20041101
  7. SIGMART [Concomitant]
     Indication: ANGINA PECTORIS
     Route: 048
     Dates: start: 20041101

REACTIONS (4)
  - GASTROINTESTINAL MUCOSAL DISORDER [None]
  - HAEMATOMA [None]
  - LOWER GASTROINTESTINAL HAEMORRHAGE [None]
  - MELAENA [None]
